FAERS Safety Report 12950312 (Version 1)
Quarter: 2016Q4

REPORT INFORMATION
  Report Type: Spontaneous
  Country: US (occurrence: US)
  Receive Date: 20161116
  Receipt Date: 20161116
  Transmission Date: 20170207
  Serious: Yes (Life-Threatening)
  Sender: FDA-Public Use
  Company Number: US-SAGENTPRD-2016-US-000055

PATIENT
  Age: 8 Year
  Sex: Male

DRUGS (9)
  1. METHYLPREDNISOLONE. [Concomitant]
     Active Substance: METHYLPREDNISOLONE
  2. LEVETIRACETAM INJECTION [Suspect]
     Active Substance: LEVETIRACETAM
     Dosage: UNK
  3. VALPROIC ACID. [Concomitant]
     Active Substance: VALPROIC ACID
  4. CLONAZEPAM. [Concomitant]
     Active Substance: CLONAZEPAM
  5. LACOSAMIDE. [Concomitant]
     Active Substance: LACOSAMIDE
  6. KETAMINE [Concomitant]
     Active Substance: KETAMINE
  7. THIOPENTAL [Concomitant]
     Active Substance: THIOPENTAL
  8. CARBAMAZEPINE. [Concomitant]
     Active Substance: CARBAMAZEPINE
  9. PHENYTOIN. [Concomitant]
     Active Substance: PHENYTOIN

REACTIONS (6)
  - Hepatic enzyme abnormal [Unknown]
  - Status epilepticus [Unknown]
  - Ileus [Unknown]
  - Amylase increased [Recovered/Resolved]
  - Lipase increased [Recovered/Resolved]
  - Blood triglycerides increased [Unknown]
